FAERS Safety Report 23494168 (Version 1)
Quarter: 2024Q1

REPORT INFORMATION
  Report Type: Spontaneous
  Country: GB (occurrence: GB)
  Receive Date: 20240207
  Receipt Date: 20240207
  Transmission Date: 20240410
  Serious: Yes (Other)
  Sender: FDA-Public Use
  Company Number: None

PATIENT
  Age: 39 Year
  Sex: Female
  Weight: 117 kg

DRUGS (1)
  1. METFORMIN [Suspect]
     Active Substance: METFORMIN HYDROCHLORIDE
     Indication: Diabetes mellitus
     Dosage: DURATION: 86 DAYS
     Route: 065
     Dates: start: 20231108, end: 20240202

REACTIONS (2)
  - Furuncle [Not Recovered/Not Resolved]
  - Bleeding time [Not Recovered/Not Resolved]

NARRATIVE: CASE EVENT DATE: 20231201
